FAERS Safety Report 4625622-4 (Version None)
Quarter: 2005Q1

REPORT INFORMATION
  Report Type: 
  Country: None (occurrence: None)
  Receive Date: 20050330
  Receipt Date: 20050311
  Transmission Date: 20050727
  Serious: Yes (Other)
  Sender: FDA-Public Use
  Company Number: EWC050343127

PATIENT
  Age: 60 Year
  Sex: Male

DRUGS (5)
  1. PERMAX [Suspect]
     Dosage: 3 MG DAY
     Dates: start: 19970925, end: 20041210
  2. ELDEPRYL [Concomitant]
  3. COMTESS (ENTACAPONE) [Concomitant]
  4. CARBIDOPA W/LEVODOPA [Concomitant]
  5. CIPRAMIL (CITALOPRAM HYDROBROMIDE) [Concomitant]

REACTIONS (1)
  - RESTRICTIVE PULMONARY DISEASE [None]
